FAERS Safety Report 11204162 (Version 1)
Quarter: 2015Q2

REPORT INFORMATION
  Report Type: Spontaneous
  Country: GB (occurrence: GB)
  Receive Date: 20150620
  Receipt Date: 20150620
  Transmission Date: 20150821
  Serious: Yes (Other)
  Sender: FDA-Public Use
  Company Number: GB-HOSPIRA-2843055

PATIENT
  Age: 14 Year
  Sex: Male

DRUGS (2)
  1. ERYTHROMYCIN. [Suspect]
     Active Substance: ERYTHROMYCIN
     Indication: ACNE
     Dosage: 1000 MG
     Route: 048
     Dates: start: 200708, end: 20071011
  2. PIZOTIFEN [Suspect]
     Active Substance: PIZOTYLINE
     Indication: MIGRAINE
     Route: 048
     Dates: end: 20071011

REACTIONS (6)
  - Palpitations [Recovered/Resolved]
  - Dizziness [Recovered/Resolved]
  - Loss of consciousness [Recovered/Resolved]
  - Electrocardiogram abnormal [Recovered/Resolved]
  - Hyperhidrosis [Recovered/Resolved]
  - Nausea [Recovered/Resolved]

NARRATIVE: CASE EVENT DATE: 20071011
